FAERS Safety Report 9330562 (Version 2)
Quarter: 2013Q2

REPORT INFORMATION
  Report Type: Report from Study
  Country: CN (occurrence: CN)
  Receive Date: 20130605
  Receipt Date: 20130607
  Transmission Date: 20140414
  Serious: Yes (Death)
  Sender: FDA-Public Use
  Company Number: PHHY2013CN056200

PATIENT
  Age: 38 Year
  Sex: Male

DRUGS (1)
  1. GLIVEC [Suspect]
     Indication: ACUTE LYMPHOCYTIC LEUKAEMIA
     Dosage: 400 MG, PER DAY
     Route: 048
     Dates: start: 20080515

REACTIONS (1)
  - Death [Fatal]
